FAERS Safety Report 7636724-2 (Version None)
Quarter: 2011Q3

REPORT INFORMATION
  Report Type: 
  Country: None (occurrence: None)
  Receive Date: 20110719
  Receipt Date: 20110708
  Transmission Date: 20111222
  Serious: Yes (Hospitalization)
  Sender: FDA-Public Use
  Company Number: 2011001435

PATIENT
  Age: 77 Year
  Sex: Female

DRUGS (13)
  1. HYDROMORPHONE (HYDROMORPHONE) [Concomitant]
  2. KEPPRA [Concomitant]
  3. ERLOTINIB HYDROCHLORIDE [Suspect]
     Indication: NON-SMALL CELL LUNG CANCER
     Dosage: 150 MG, UID/QD, ORAL
     Route: 048
     Dates: start: 20100625, end: 20110322
  4. LORAZEPAM [Concomitant]
  5. EPIPEN [Concomitant]
  6. PRIMIDONE [Concomitant]
  7. LIDOCAINE [Concomitant]
  8. PREDNISONE [Concomitant]
  9. SIMETHICON (SMETICONE) [Concomitant]
  10. CALCITONIN (CALCITONIN) [Concomitant]
  11. LOPERAMIDE [Concomitant]
  12. PULMICORT [Concomitant]
  13. ALBUTEROL [Concomitant]

REACTIONS (9)
  - SKIN LESION [None]
  - NAUSEA [None]
  - PAIN [None]
  - DISEASE PROGRESSION [None]
  - SKIN MASS [None]
  - DIZZINESS [None]
  - FAILURE TO THRIVE [None]
  - RESPIRATORY DISTRESS [None]
  - RASH [None]
